FAERS Safety Report 16464379 (Version 1)
Quarter: 2019Q2

REPORT INFORMATION
  Report Type: Spontaneous
  Country: JP (occurrence: JP)
  Receive Date: 20190621
  Receipt Date: 20190621
  Transmission Date: 20190711
  Serious: Yes (Other)
  Sender: FDA-Public Use
  Company Number: JP-PFIZER INC-2019252767

PATIENT
  Age: 39 Year
  Sex: Female

DRUGS (1)
  1. PRECEDEX [Suspect]
     Active Substance: DEXMEDETOMIDINE HYDROCHLORIDE
     Indication: LOCAL ANAESTHESIA
     Dosage: 0.8 MCG/KG/HR

REACTIONS (1)
  - Depressed level of consciousness [Recovering/Resolving]
